FAERS Safety Report 6862543-0 (Version None)
Quarter: 2010Q3

REPORT INFORMATION
  Report Type: 
  Country: None (occurrence: None)
  Receive Date: 20100716
  Receipt Date: 20100702
  Transmission Date: 20110219
  Serious: Yes (Life-Threatening)
  Sender: FDA-Public Use
  Company Number: DSA_43478_2010

PATIENT
  Age: 53 Year
  Sex: Female

DRUGS (4)
  1. DILTIAZEM HYDROCHLORIDE [Suspect]
     Indication: HYPERTENSION
     Dosage: (DF ORAL)
     Route: 048
     Dates: start: 20100614, end: 20100621
  2. KARDEGIC (KARDEGIC - ACETYLSALICYLATE LYSINE) 75 MG (NOT SPECIFIED) [Suspect]
     Indication: PRODUCT USED FOR UNKNOWN INDICATION
     Dosage: (75 MG QD ORAL)
     Route: 048
     Dates: start: 20070901
  3. RIVOTRIL (RIVOTRIL - CONAZEPAM) (NOT SPECIFIED) [Suspect]
     Indication: PAIN
     Dosage: (2 GTT QD ORAL)
     Route: 048
     Dates: start: 20080801
  4. IPERTEN [Concomitant]

REACTIONS (4)
  - HYPOTENSION [None]
  - SEPSIS [None]
  - TACHYCARDIA [None]
  - TOXIC EPIDERMAL NECROLYSIS [None]
